FAERS Safety Report 22903102 (Version 2)
Quarter: 2023Q4

REPORT INFORMATION
  Report Type: Spontaneous
  Country: FR (occurrence: FR)
  Receive Date: 20230905
  Receipt Date: 20231124
  Transmission Date: 20240110
  Serious: Yes (Life-Threatening, Hospitalization)
  Sender: FDA-Public Use
  Company Number: None

PATIENT
  Age: 37 Year
  Sex: Male
  Weight: 70 kg

DRUGS (6)
  1. DARZALEX [Suspect]
     Active Substance: DARATUMUMAB
     Indication: Chemotherapy
     Route: 065
     Dates: start: 20220501, end: 20230726
  2. VELCADE [Suspect]
     Active Substance: BORTEZOMIB
     Indication: Chemotherapy
     Route: 042
     Dates: start: 20230713
  3. VELCADE [Suspect]
     Active Substance: BORTEZOMIB
     Indication: Monoclonal gammopathy
     Route: 042
     Dates: start: 20230713
  4. ECULIZUMAB [Suspect]
     Active Substance: ECULIZUMAB
     Indication: Chemotherapy
     Route: 042
     Dates: start: 201911, end: 20230713
  5. ECULIZUMAB [Suspect]
     Active Substance: ECULIZUMAB
     Indication: Monoclonal gammopathy
     Dosage: 220MG 1 INJECTION EVERY 15 DAYS
     Route: 042
     Dates: start: 20220501, end: 20230713
  6. ERYTHROPOIETIN [Suspect]
     Active Substance: ERYTHROPOIETIN
     Indication: Atypical haemolytic uraemic syndrome
     Dosage: 300MG PER WEEK AFTER 300 MG EVERY 15 DAYS AFTER 150MG EVERY 15 DAYS AFTER 19/07
     Route: 042
     Dates: start: 20230301

REACTIONS (2)
  - Posterior reversible encephalopathy syndrome [Recovering/Resolving]
  - Cytotoxic oedema [Recovering/Resolving]

NARRATIVE: CASE EVENT DATE: 20191101
